FAERS Safety Report 6877187-4 (Version None)
Quarter: 2010Q3

REPORT INFORMATION
  Report Type: 
  Country: None (occurrence: None)
  Receive Date: 20100727
  Receipt Date: 20100715
  Transmission Date: 20110219
  Serious: Yes (Death, Hospitalization)
  Sender: FDA-Public Use
  Company Number: SE-AMGEN-US265657

PATIENT
  Sex: Female

DRUGS (9)
  1. ENBREL [Suspect]
     Indication: RHEUMATOID ARTHRITIS
     Dates: start: 19991208, end: 20071201
  2. PRIMPERAN TAB [Concomitant]
  3. DEXOFEN [Concomitant]
  4. FOSAMAX [Concomitant]
  5. CALCICHEW-D3 [Concomitant]
  6. ALVEDON [Concomitant]
  7. LAKTULOSE [Concomitant]
  8. OMEPRAZOLE [Concomitant]
  9. PREDNISOLON [Concomitant]

REACTIONS (6)
  - C-REACTIVE PROTEIN INCREASED [None]
  - PYREXIA [None]
  - RENAL TUBULAR NECROSIS [None]
  - SEPSIS [None]
  - STAPHYLOCOCCAL INFECTION [None]
  - UROSEPSIS [None]
